FAERS Safety Report 19107105 (Version 1)
Quarter: 2021Q2

REPORT INFORMATION
  Report Type: Spontaneous
  Country: NL (occurrence: NL)
  Receive Date: 20210408
  Receipt Date: 20210408
  Transmission Date: 20210717
  Serious: Yes (Other)
  Sender: FDA-Public Use
  Company Number: NL-PFIZER INC-2021322400

PATIENT
  Age: 24 Year
  Sex: Female
  Weight: 120 kg

DRUGS (5)
  1. RIFADIN [Suspect]
     Active Substance: RIFAMPIN
     Dosage: 300 MG
     Dates: start: 20210101
  2. CLINDAMYCIN HCL [Suspect]
     Active Substance: CLINDAMYCIN HYDROCHLORIDE
     Dosage: 2 X 2 PIECES
     Dates: start: 202101
  3. CLINDAMYCIN HCL [Concomitant]
     Active Substance: CLINDAMYCIN HYDROCHLORIDE
     Dosage: 300 MG
  4. COMIRNATY [Suspect]
     Active Substance: TOZINAMERAN
     Indication: COVID-19 IMMUNISATION
     Dosage: SINGLE DOSE
     Route: 030
     Dates: start: 20210213, end: 20210213
  5. RIFAMPICINE [Concomitant]
     Active Substance: RIFAMPIN
     Dosage: 300 MG

REACTIONS (14)
  - Vaccination site erythema [Recovered/Resolved]
  - Malaise [Not Recovered/Not Resolved]
  - Vaccination site pain [Recovered/Resolved]
  - Chills [Recovered/Resolved]
  - Fatigue [Not Recovered/Not Resolved]
  - Headache [Recovered/Resolved]
  - Vaccination site inflammation [Recovered/Resolved]
  - Arthralgia [Recovered/Resolved]
  - Pyrexia [Recovered/Resolved]
  - Vaccination site swelling [Recovered/Resolved]
  - Vaccination site warmth [Recovered/Resolved]
  - Nephrolithiasis [Not Recovered/Not Resolved]
  - Myalgia [Recovered/Resolved]
  - Nausea [Recovered/Resolved]

NARRATIVE: CASE EVENT DATE: 20210213
